FAERS Safety Report 6928491-2 (Version None)
Quarter: 2010Q3

REPORT INFORMATION
  Report Type: 
  Country: None (occurrence: None)
  Receive Date: 20100817
  Receipt Date: 20100809
  Transmission Date: 20110219
  Serious: Yes (Other)
  Sender: FDA-Public Use
  Company Number: US-PFIZER INC-2010055316

PATIENT
  Sex: Male

DRUGS (18)
  1. CHANTIX [Suspect]
     Indication: SMOKING CESSATION THERAPY
     Dosage: UNK
     Dates: start: 20070502, end: 20070801
  2. TOPROL-XL [Concomitant]
     Indication: HYPERTENSION
     Dosage: UNK
     Dates: start: 20050101, end: 20080101
  3. NYQUIL [Concomitant]
     Indication: NASAL CONGESTION
     Dosage: UNK
     Dates: start: 20000101, end: 20100101
  4. NYQUIL [Concomitant]
     Indication: PYREXIA
  5. GUAIFENESIN [Concomitant]
     Indication: COUGH
     Dosage: UNK
     Dates: start: 20000101, end: 20090101
  6. ACETAMINOPHEN [Concomitant]
     Indication: INFLUENZA
     Dosage: UNK
     Dates: start: 20000101
  7. PREVACID [Concomitant]
     Indication: GASTROOESOPHAGEAL REFLUX DISEASE
     Dosage: UNK
  8. ZITHROMAX [Concomitant]
     Indication: ANTIBIOTIC THERAPY
     Dosage: UNK
     Dates: start: 20060101, end: 20090101
  9. ALLEGRA [Concomitant]
     Indication: RHINITIS ALLERGIC
     Dosage: UNK
     Dates: start: 20060101, end: 20090101
  10. ALLEGRA D 24 HOUR [Concomitant]
     Indication: RHINITIS ALLERGIC
     Dosage: UNK
     Dates: start: 20060101, end: 20090101
  11. SIMVASTATIN [Concomitant]
     Indication: BLOOD CHOLESTEROL INCREASED
     Dosage: UNK
     Dates: start: 20060101
  12. CEPHALEXIN [Concomitant]
     Indication: ANTIBIOTIC THERAPY
     Dosage: UNK
     Dates: start: 20060101, end: 20080101
  13. MUPIROCIN [Concomitant]
     Indication: INFECTION
     Dosage: UNK
     Dates: start: 20060101, end: 20080101
  14. FLUTICASONE [Concomitant]
     Indication: RESPIRATORY DISORDER
     Dosage: UNK
     Dates: start: 20060101, end: 20080101
  15. AZITHROMYCIN [Concomitant]
     Indication: ANTIBIOTIC THERAPY
     Dosage: UNK
     Dates: start: 20060101, end: 20080101
  16. LEVAQUIN [Concomitant]
     Indication: SINUSITIS
     Dosage: UNK
     Dates: start: 20050101, end: 20080101
  17. LEVAQUIN [Concomitant]
     Indication: BRONCHITIS
  18. LEVAQUIN [Concomitant]
     Indication: UPPER RESPIRATORY TRACT INFECTION

REACTIONS (6)
  - ANXIETY [None]
  - DEPRESSION [None]
  - HEADACHE [None]
  - INTENTIONAL OVERDOSE [None]
  - MUSCLE SPASMS [None]
  - SUICIDE ATTEMPT [None]
